FAERS Safety Report 10762122 (Version 1)
Quarter: 2015Q1

REPORT INFORMATION
  Report Type: Spontaneous
  Country: US (occurrence: None)
  Receive Date: 20150128
  Receipt Date: 20150128
  Transmission Date: 20150721
  Serious: Yes (Other)
  Sender: FDA-Public Use
  Company Number: 1373418

PATIENT
  Age: 67 Year
  Sex: Female
  Weight: 63.5 kg

DRUGS (11)
  1. RITUXAN [Suspect]
     Active Substance: RITUXIMAB
     Indication: NON-HODGKIN^S LYMPHOMA
     Dosage: 600 MG , 1 IN 1 WK
     Dates: start: 20131129
  2. DEXAMETHASONE. [Concomitant]
     Active Substance: DEXAMETHASONE
  3. TYLENOL [Concomitant]
     Active Substance: ACETAMINOPHEN
  4. ACETAMINOPHEN (PARACETAMOL) [Concomitant]
     Active Substance: ACETAMINOPHEN
  5. DECADRON [Concomitant]
     Active Substance: DEXAMETHASONE
  6. PEPCID [Concomitant]
     Active Substance: FAMOTIDINE
  7. FAMOTIDINE. [Concomitant]
     Active Substance: FAMOTIDINE
  8. MORPHINE [Concomitant]
     Active Substance: MORPHINE
  9. DIPHENHYDRAMINE [Concomitant]
     Active Substance: DIPHENHYDRAMINE
  10. BENADRYL (UNITED STATES) (DIPHENHYDRAMINE HYDROCHLORIDE) [Concomitant]
  11. BENDAMUSTINE [Concomitant]
     Active Substance: BENDAMUSTINE

REACTIONS (4)
  - Neutrophil count decreased [None]
  - Platelet count decreased [None]
  - Chills [None]
  - White blood cell count decreased [None]

NARRATIVE: CASE EVENT DATE: 20131129
